FAERS Safety Report 22129455 (Version 1)
Quarter: 2023Q1

REPORT INFORMATION
  Report Type: Report from Study
  Country: US (occurrence: US)
  Receive Date: 20230323
  Receipt Date: 20230323
  Transmission Date: 20230418
  Serious: Yes (Death, Hospitalization)
  Sender: FDA-Public Use
  Company Number: US-BAUSCH-BL-2021-027093

PATIENT
  Age: 63 Year
  Sex: Female
  Weight: 67.7 kg

DRUGS (25)
  1. XIFAXAN [Suspect]
     Active Substance: RIFAXIMIN
     Indication: Hepatic encephalopathy
     Route: 048
  2. CYMBALTA [Concomitant]
     Active Substance: DULOXETINE HYDROCHLORIDE
     Indication: Product used for unknown indication
     Dosage: DELAYED RELEASE CAPSULE
     Route: 048
  3. FERROUS SULFATE [Concomitant]
     Active Substance: FERROUS SULFATE
     Indication: Product used for unknown indication
     Dosage: 65 MG OF IRON BY MOUTH, ON EMPTY STOMACH 1 HR BEFORE OR 2 HRS AFTER EATING
     Route: 048
  4. DUONEB [Concomitant]
     Active Substance: ALBUTEROL SULFATE\IPRATROPIUM BROMIDE
     Indication: Wheezing
     Dosage: 0.5 MG-3  MG(2.5 MG BASE)/3ML NEBULIZER SOLUTION, INHALE 3 ML INTO THE LUNGS EVERY 4 HOURS AS NEEDED
     Route: 055
  5. JEVITY [FAMOTIDINE] [Concomitant]
     Indication: Product used for unknown indication
     Dosage: 1.5 CAL 0.06 GRAM-1.5 KCAL/ML LIQUID, ADMINISTER BY G TUBE, 1 CARTON IN AM, 2 CARTONS AT NOON
  6. JEVITY [FAMOTIDINE] [Concomitant]
     Dosage: 1.5 CAL 0.06 GRAM-1.5 KCAL/ML LIQUID, ADMINISTER BY G TUBE, 100ML/HR X 6 HOURS BID.
  7. MAGNESIUM OXIDE [Concomitant]
     Active Substance: MAGNESIUM OXIDE
     Indication: Product used for unknown indication
     Dosage: 400 MG (241.3 MG MAGNESIUM). PT. TAKING DIFFERENTLY 800 MG BY G TUBE 2 TIMES DAILY.
     Route: 048
  8. MEGACE [Concomitant]
     Active Substance: MEGESTROL ACETATE
     Indication: Product used for unknown indication
     Dosage: 40 MG BY G TUBE 2 TIMES DAILY
  9. CELLCEPT [Concomitant]
     Active Substance: MYCOPHENOLATE MOFETIL
     Indication: Product used for unknown indication
     Route: 048
  10. CELLCEPT [Concomitant]
     Active Substance: MYCOPHENOLATE MOFETIL
     Dosage: ADMINISTER 500 MG BY G TUBE 2 TIMES DAILY
  11. DELTASONE [Concomitant]
     Active Substance: PREDNISONE
     Indication: Product used for unknown indication
     Dosage: PATIENT TAKING DIFFERENTLY: 40 MG BY G TUBE DAILY
     Route: 048
  12. ALDACTONE [Concomitant]
     Active Substance: SPIRONOLACTONE
     Indication: Product used for unknown indication
     Dosage: 50 MG BY G TUBE 2 TIMES DAILY
  13. VITAMIN B-1 [THIAMINE MONONITRATE] [Concomitant]
     Indication: Product used for unknown indication
     Dosage: PATIENT TAKING DIFFERENTLY, ADMINISTERING 10 MG BY G TUBE DAILY
     Route: 048
  14. PREVACID [Concomitant]
     Active Substance: LANSOPRAZOLE
     Indication: Product used for unknown indication
     Dosage: DISINTEGRATING TABLET, 2 TABS, ORAL, BID. PREVACID SOLUTAB PT TAKING 30 MG BID VIA G TUBE
     Route: 048
  15. DUPHALAC [Concomitant]
     Active Substance: LACTULOSE
     Indication: Product used for unknown indication
     Dosage: 20 GRAM/30 ML, ADMINISTER 30 ML BY PEG TUBE 3 TIMES DAILY.
     Route: 048
  16. DUPHALAC [Concomitant]
     Active Substance: LACTULOSE
     Dosage: 20 GRAM/30 ML, ADMINISTER 20 G BY G TUBE 3 TIMES DAILY.
     Route: 048
  17. LASIX [Concomitant]
     Active Substance: FUROSEMIDE
     Indication: Product used for unknown indication
     Dosage: BY G TUBE.
  18. PROTONIX [Concomitant]
     Active Substance: PANTOPRAZOLE SODIUM
     Indication: Product used for unknown indication
     Route: 065
  19. ZOVIRAX [Concomitant]
     Active Substance: ACYCLOVIR
     Indication: Product used for unknown indication
  20. KEFLEX [Concomitant]
     Active Substance: CEPHALEXIN
     Indication: Product used for unknown indication
     Route: 048
  21. CYANOCOBALAMIN [Concomitant]
     Active Substance: CYANOCOBALAMIN
     Indication: Product used for unknown indication
  22. FERROUS SULFATE [Concomitant]
     Active Substance: FERROUS SULFATE
     Indication: Product used for unknown indication
     Dosage: 220 MG (44 MG IRON)/ 5 ML ORAL ELIXIR, ADMINSTER 66 MG OF IRON BY G TUBE DAILY WITH WATER/JUICE
  23. NEURONTIN [Concomitant]
     Active Substance: GABAPENTIN
     Indication: Product used for unknown indication
  24. ZOFRAN [Concomitant]
     Active Substance: ONDANSETRON HYDROCHLORIDE
     Indication: Product used for unknown indication
     Route: 048
  25. EFFEXOR [Concomitant]
     Active Substance: VENLAFAXINE HYDROCHLORIDE
     Indication: Product used for unknown indication
     Dosage: 1 TABLET BY G TUBE 2 TIMES DAILY

REACTIONS (6)
  - Death [Fatal]
  - Ammonia increased [Unknown]
  - Dysphagia [Unknown]
  - Nervous system disorder [Unknown]
  - Catheter site irritation [Recovering/Resolving]
  - Treatment noncompliance [Unknown]

NARRATIVE: CASE EVENT DATE: 20210101
